FAERS Safety Report 11690718 (Version 1)
Quarter: 2015Q4

REPORT INFORMATION
  Report Type: Spontaneous
  Country: US (occurrence: None)
  Receive Date: 20151102
  Receipt Date: 20151102
  Transmission Date: 20160304
  Serious: Yes (Hospitalization, Other)
  Sender: FDA-Public Use
  Company Number: US-MDT-ADR-2015-02061

PATIENT
  Age: 46 Year
  Sex: Female

DRUGS (2)
  1. COMPOUNDED BACLOFEN INTRATHECAL 200 MCG/ML [Suspect]
     Active Substance: BACLOFEN
     Indication: SPINAL PAIN
     Dosage: 73.6 MCG/DAY
  2. FENTANYL INTRATHECAL 5000 MCG/ML [Suspect]
     Active Substance: FENTANYL
     Dosage: 1840.5 MCG/DAY

REACTIONS (2)
  - Pain [None]
  - Drug withdrawal syndrome [None]
